FAERS Safety Report 23951175 (Version 1)
Quarter: 2024Q2

REPORT INFORMATION
  Report Type: Report from Study
  Country: US (occurrence: US)
  Receive Date: 20240607
  Receipt Date: 20240607
  Transmission Date: 20240716
  Serious: No
  Sender: FDA-Public Use
  Company Number: US-SPRINGWORKS THERAPEUTICS-SW-001548

PATIENT
  Age: 34 Year
  Sex: Female
  Weight: 90.718 kg

DRUGS (2)
  1. NIROGACESTAT [Suspect]
     Active Substance: NIROGACESTAT
     Indication: Product used for unknown indication
     Dosage: 150.0 MILLIGRAM, BID
     Route: 048
     Dates: start: 20240210
  2. NIROGACESTAT [Suspect]
     Active Substance: NIROGACESTAT
     Dosage: 2 TABS IN AM AND 3 TABS IN PM
     Route: 048
     Dates: start: 20240314

REACTIONS (5)
  - Nasopharyngitis [Recovered/Resolved]
  - Cough [Recovered/Resolved]
  - Alopecia [Not Recovered/Not Resolved]
  - Dyspnoea [Unknown]
  - Fatigue [Unknown]

NARRATIVE: CASE EVENT DATE: 20240201
